FAERS Safety Report 7003872-X (Version None)
Quarter: 2010Q3

REPORT INFORMATION
  Report Type: 
  Country: None (occurrence: None)
  Receive Date: 20100920
  Receipt Date: 20091221
  Transmission Date: 20110219
  Serious: No
  Sender: FDA-Public Use
  Company Number: US-WYE-H12731409

PATIENT
  Sex: Male

DRUGS (1)
  1. PRISTIQ [Suspect]
     Dosage: UNKNOWN - ^SAMPLES^

REACTIONS (4)
  - DRY MOUTH [None]
  - DYSGEUSIA [None]
  - NAUSEA [None]
  - SEXUAL DYSFUNCTION [None]
